FAERS Safety Report 10235550 (Version 2)
Quarter: 2014Q3

REPORT INFORMATION
  Report Type: Spontaneous
  Country: GB (occurrence: GB)
  Receive Date: 20140613
  Receipt Date: 20140714
  Transmission Date: 20150326
  Serious: Yes (Hospitalization, Other)
  Sender: FDA-Public Use
  Company Number: GB-SA-2014SA075375

PATIENT
  Age: 67 Year
  Sex: Male
  Weight: 70 kg

DRUGS (1)
  1. DRONEDARONE [Suspect]
     Active Substance: DRONEDARONE
     Indication: ATRIAL FIBRILLATION
     Route: 048
     Dates: start: 20140516, end: 20140527

REACTIONS (8)
  - Heart rate increased [Recovered/Resolved]
  - Pulmonary toxicity [Unknown]
  - Body temperature fluctuation [Unknown]
  - Feeling cold [Unknown]
  - Hyperhidrosis [Unknown]
  - Cough [Recovered/Resolved]
  - Hypotension [Unknown]
  - Rales [Recovered/Resolved]

NARRATIVE: CASE EVENT DATE: 20140516
